FAERS Safety Report 24322914 (Version 1)
Quarter: 2024Q3

REPORT INFORMATION
  Report Type: Spontaneous
  Country: US (occurrence: US)
  Receive Date: 20240916
  Receipt Date: 20240916
  Transmission Date: 20241017
  Serious: No
  Sender: ELI LILLY AND CO
  Company Number: US-ELI_LILLY_AND_COMPANY-US202409006640

PATIENT
  Age: 46 Year
  Sex: Female

DRUGS (1)
  1. TIRZEPATIDE [Suspect]
     Active Substance: TIRZEPATIDE
     Indication: Obesity
     Dosage: 75 U, WEEKLY (1/W)
     Route: 065
     Dates: start: 202406

REACTIONS (5)
  - Eczema [Unknown]
  - Rash [Unknown]
  - Pruritus [Unknown]
  - Product tampering [Unknown]
  - Hypersensitivity [Unknown]
